FAERS Safety Report 7903901-2 (Version None)
Quarter: 2011Q4

REPORT INFORMATION
  Report Type: 
  Country: None (occurrence: None)
  Receive Date: 20111109
  Receipt Date: 20111103
  Transmission Date: 20120403
  Serious: Yes (Other)
  Sender: FDA-Public Use
  Company Number: JP-JNJFOC-20111012285

PATIENT
  Age: 91 Year
  Sex: Female

DRUGS (6)
  1. EPADEL [Concomitant]
     Route: 048
  2. JUVELA [Concomitant]
     Route: 065
  3. JANUVIA [Concomitant]
     Route: 048
  4. PLETAL [Concomitant]
     Route: 048
  5. MAGNESIUM SULFATE [Concomitant]
     Route: 048
  6. GALANTAMINE HYDROBROMIDE [Suspect]
     Indication: DEMENTIA ALZHEIMER'S TYPE
     Route: 048
     Dates: start: 20111013, end: 20111024

REACTIONS (2)
  - DELUSION [None]
  - HALLUCINATION [None]
